FAERS Safety Report 7988741 (Version 2)
Quarter: 2012Q4

REPORT INFORMATION
  Report Type: 
  Country: CA (occurrence: CA)
  Receive Date: 20110613
  Receipt Date: 20121109
  Transmission Date: 20130627
  Serious: Yes (Other)
  Sender: FDA-Public Use
  Company Number: PHMT2007CA01126

PATIENT
  Sex: Female

DRUGS (1)
  1. SANDOSTATIN LAR [Suspect]
     Indication: CROHN^S DISEASE
     Dosage: 20mg once a month
     Route: 030
     Dates: start: 20060315

REACTIONS (3)
  - Weight decreased [Unknown]
  - Stress at work [Unknown]
  - Anxiety [Unknown]
